FAERS Safety Report 5037839-8 (Version None)
Quarter: 2006Q2

REPORT INFORMATION
  Report Type: 
  Country: None (occurrence: None)
  Receive Date: 20060601
  Receipt Date: 20060307
  Transmission Date: 20061013
  Serious: Yes (Hospitalization)
  Sender: FDA-Public Use
  Company Number: 2006US000130

PATIENT
  Age: 12 Year
  Sex: Female
  Weight: 27 kg

DRUGS (10)
  1. PROGRAF [Suspect]
     Indication: PROPHYLAXIS AGAINST TRANSPLANT REJECTION
     Dosage: 1 MG, BID, ORAL
     Route: 048
     Dates: start: 20060105
  2. IMMUNE GLOBULIN INTRAVENOUS (HUMAN) [Concomitant]
  3. NORVASC [Concomitant]
  4. PREDNISONE TAB [Concomitant]
  5. PREVACID [Concomitant]
  6. REGLAN [Concomitant]
  7. PENTAMIDINE (PENTAMIDINE) [Concomitant]
  8. IRON (IRON) [Concomitant]
  9. SODIUM BICARBONATE IN PLASTIC CONTAINER [Concomitant]
  10. ACYCLOVIR [Concomitant]

REACTIONS (1)
  - STEVENS-JOHNSON SYNDROME [None]
